FAERS Safety Report 7416174-4 (Version None)
Quarter: 2011Q2

REPORT INFORMATION
  Report Type: 
  Country: None (occurrence: None)
  Receive Date: 20110406
  Receipt Date: 20110328
  Transmission Date: 20111010
  Serious: Yes (Life-Threatening)
  Sender: FDA-Public Use
  Company Number: 2011030134

PATIENT
  Age: 59 Year
  Sex: Male

DRUGS (7)
  1. ONSOLIS [Suspect]
     Indication: CANCER PAIN
     Dosage: TO BE TITRATED UP TO 4-200 MCG FILM/DOSE (UP TO FOUR TIMES DAILY), BU
     Route: 002
     Dates: start: 20101210, end: 20101227
  2. DURAGESIC-100 [Concomitant]
  3. ONSOLIS [Suspect]
     Dosage: (800 MCG, EVERY 6 HOURS, PRN), BU
     Route: 002
     Dates: start: 20110304, end: 20110301
  4. ONSOLIS [Suspect]
     Dosage: (400 MCG, UP TO FOUR TIMES DAILY), BU
     Route: 002
     Dates: start: 20101228, end: 20110202
  5. ONSOLIS [Suspect]
     Dosage: (600 MCG. EVERY 6 HOURS, PRN), BU
     Route: 002
     Dates: start: 20110203, end: 20110303
  6. OXYCODONE (OXYCODONE) [Concomitant]
  7. OXYCONTIN [Concomitant]

REACTIONS (2)
  - NEOPLASM MALIGNANT [None]
  - RENAL CANCER METASTATIC [None]
